FAERS Safety Report 18072868 (Version 1)
Quarter: 2020Q3

REPORT INFORMATION
  Report Type: Spontaneous
  Country: US (occurrence: US)
  Receive Date: 20200726
  Receipt Date: 20200726
  Transmission Date: 20201103
  Serious: Yes (Death)
  Sender: FDA-Public Use
  Company Number: None

PATIENT
  Age: 81 Year
  Sex: Female
  Weight: 60.6 kg

DRUGS (33)
  1. MECLIZINE [Concomitant]
     Active Substance: MECLIZINE HYDROCHLORIDE
     Route: 048
     Dates: end: 20200713
  2. METHYLPREDNISOLONE SODIUM SUCCINATE. [Concomitant]
     Active Substance: METHYLPREDNISOLONE SODIUM SUCCINATE
     Dosage: ?          OTHER DOSE:40?125 MG;OTHER ROUTE:IV?
     Dates: start: 20200705, end: 20200710
  3. AZITHROMYCIN ANHYDROUS. [Concomitant]
     Active Substance: AZITHROMYCIN ANHYDROUS
     Dosage: ?          OTHER ROUTE:IV?
     Dates: start: 20200706, end: 20200706
  4. CHLORHEXIDINE [Concomitant]
     Active Substance: CHLORHEXIDINE
     Route: 048
     Dates: start: 20200712, end: 20200723
  5. MELATONIN [Concomitant]
     Active Substance: MELATONIN
     Route: 048
     Dates: start: 20200705, end: 20200713
  6. NOREPINEPHRINE. [Concomitant]
     Active Substance: NOREPINEPHRINE
     Dosage: ?          OTHER DOSE:0.02?0.16 MCG/KG/M;OTHER FREQUENCY:CONTINUOUS;OTHER ROUTE:IV?
     Dates: start: 20200712, end: 20200720
  7. ASCORBIC ACID (VITAMIN C) [Concomitant]
     Active Substance: ASCORBIC ACID
     Route: 048
     Dates: start: 20200713, end: 20200714
  8. HYDROCODONE? ACETAMINOPHEN [Concomitant]
     Dosage: ?          OTHER FREQUENCY:Q 6?12 HR;?
     Route: 048
     Dates: end: 20200713
  9. INSULIN ASPART [Concomitant]
     Active Substance: INSULIN ASPART
     Dosage: ?          OTHER DOSE:0?10 UNITS;OTHER FREQUENCY:AC + HS PRN;?
     Route: 058
     Dates: start: 20200702, end: 20200708
  10. INSULIN DETEMIR [Concomitant]
     Active Substance: INSULIN DETEMIR
     Dosage: ?          OTHER DOSE:8?25 UNITS;?
     Route: 058
     Dates: start: 20200707, end: 20200723
  11. INSULIN, REGULAR [Concomitant]
     Active Substance: INSULIN NOS
     Dosage: ?          OTHER DOSE:0?10 UNITS;OTHER FREQUENCY:Q 4 HR PRN;?
     Route: 058
     Dates: start: 20200708, end: 20200723
  12. SENNA ? DOCUSATE 8.5 ? 50 [Concomitant]
     Route: 048
     Dates: start: 20200702, end: 20200713
  13. ZINC SULFATE. [Concomitant]
     Active Substance: ZINC SULFATE
  14. AZITHROMYCIN ANHYDROUS. [Concomitant]
     Active Substance: AZITHROMYCIN ANHYDROUS
     Route: 048
     Dates: start: 20200706, end: 20200708
  15. CHOLECALCIFEROL (VITAMIN D3) [Concomitant]
     Dosage: ?          OTHER FREQUENCY:ONCE OR BID;?
     Route: 048
     Dates: start: 20200706, end: 20200713
  16. DEXAMETHASONE. [Suspect]
     Active Substance: DEXAMETHASONE
     Dosage: ?          OTHER FREQUENCY:Q 12?24 HR;OTHER ROUTE:IV?
     Dates: start: 20200710, end: 20200720
  17. DONEPEZIL. [Concomitant]
     Active Substance: DONEPEZIL
     Route: 048
     Dates: end: 20200723
  18. LOSARTAN. [Concomitant]
     Active Substance: LOSARTAN
     Route: 048
     Dates: end: 20200713
  19. MUPIROCIN. [Concomitant]
     Active Substance: MUPIROCIN
     Route: 045
     Dates: start: 20200706, end: 20200711
  20. REMDESIVIR SOLUTION 100MG VIAL [Suspect]
     Active Substance: REMDESIVIR
     Indication: COVID-19 PNEUMONIA
     Dosage: ?          OTHER ROUTE:IV?
     Route: 042
     Dates: start: 20200707, end: 20200716
  21. ONDANSETRON [Concomitant]
     Active Substance: ONDANSETRON
     Dosage: ?          OTHER ROUTE:IV?
     Dates: start: 20200711, end: 20200711
  22. ACETAMINOPHEN. [Concomitant]
     Active Substance: ACETAMINOPHEN
     Route: 048
     Dates: start: 20200702, end: 20200723
  23. ENOXAPRIN [Suspect]
     Active Substance: ENOXAPARIN
     Dosage: ?          OTHER DOSE:40?60 MG;OTHER FREQUENCY:Q 12?24 HR;?
     Route: 058
     Dates: start: 20200702, end: 20200723
  24. PROPOFOL. [Concomitant]
     Active Substance: PROPOFOL
     Dosage: ?          OTHER FREQUENCY:CONTINUOUS;OTHER ROUTE:IV?
     Dates: start: 20200712, end: 20200723
  25. ALBUTEROL. [Concomitant]
     Active Substance: ALBUTEROL
     Dosage: ?          OTHER DOSE:2 PUFFS;OTHER FREQUENCY:Q6?8 HR;?
     Dates: start: 20200706, end: 20200723
  26. CEFAZOLIN [Concomitant]
     Active Substance: CEFAZOLIN
     Dosage: ?          OTHER ROUTE:IV?
     Dates: start: 20200716, end: 20200718
  27. CEFEPIME [Concomitant]
     Active Substance: CEFEPIME HYDROCHLORIDE
     Dosage: ?          OTHER ROUTE:IV?
     Dates: start: 20200712, end: 20200714
  28. VANCOMYCIN [Concomitant]
     Active Substance: VANCOMYCIN
     Dosage: ?          OTHER FREQUENCY:INTERMITTENT DOSIN;OTHER ROUTE:IV?
     Dates: start: 20200713, end: 20200723
  29. REMDESIVIR SOLUTION 100MG VIAL [Suspect]
     Active Substance: REMDESIVIR
     Indication: COVID-19 PNEUMONIA
     Dosage: ?   FREQUENCY: ONCE?
     Route: 042
     Dates: start: 20200706, end: 20200706
  30. ATORVASTATIN [Concomitant]
     Active Substance: ATORVASTATIN
     Route: 048
     Dates: end: 20200714
  31. FENTANYL. [Concomitant]
     Active Substance: FENTANYL
     Dosage: ?          OTHER FREQUENCY:CONTINUOUS;OTHER ROUTE:IV?
     Dates: start: 20200712, end: 20200723
  32. FUROSEMIDE. [Concomitant]
     Active Substance: FUROSEMIDE
     Dosage: ?          OTHER FREQUENCY:X 3 DOSES;OTHER ROUTE:IV?
     Dates: start: 20200715, end: 20200719
  33. GUAIFENESIN. [Concomitant]
     Active Substance: GUAIFENESIN
     Route: 048
     Dates: start: 20200706, end: 20200713

REACTIONS (3)
  - Pulse absent [None]
  - Respiratory arrest [None]
  - Subcutaneous emphysema [None]

NARRATIVE: CASE EVENT DATE: 20200723
